FAERS Safety Report 9720643 (Version 2)
Quarter: 2014Q1

REPORT INFORMATION
  Report Type: Report from Study
  Country: US (occurrence: US)
  Receive Date: 20131129
  Receipt Date: 20140213
  Transmission Date: 20141002
  Serious: Yes (Hospitalization, Other)
  Sender: FDA-Public Use
  Company Number: PHEH2013US024774

PATIENT
  Age: 48 Year
  Sex: Male
  Weight: 90 kg

DRUGS (10)
  1. TASIGNA [Suspect]
     Indication: CHRONIC MYELOID LEUKAEMIA
     Dosage: 600 MG, UNK
     Route: 048
     Dates: start: 20120127
  2. SYNTHROID [Concomitant]
     Indication: HYPOTHYROIDISM
     Dosage: 175 UG, QD
     Dates: start: 2004
  3. JANUVIA [Concomitant]
     Dosage: 100 MG, UNK
  4. GLIPIZIDE [Concomitant]
     Indication: DIABETES MELLITUS
     Dosage: 5 MG, BID
  5. GEMFIBROZIL [Concomitant]
     Dosage: 600 MG, BID
  6. GABAPENTIN [Concomitant]
     Indication: NEUROPATHY PERIPHERAL
     Dosage: 300 MG, BID
  7. VIIBRYD [Concomitant]
     Dosage: 10 MG, UNK
  8. XANAX [Concomitant]
     Indication: ANXIETY
     Dosage: 0.5 MG, BID
  9. HYDROCODONE/APAP [Concomitant]
     Dosage: 500 MG, UNK
  10. LORTAB [Concomitant]

REACTIONS (3)
  - Intestinal obstruction [Recovered/Resolved]
  - Fatigue [Unknown]
  - Pain [Unknown]
